FAERS Safety Report 24617265 (Version 1)
Quarter: 2024Q4

REPORT INFORMATION
  Report Type: Spontaneous
  Country: IT (occurrence: IT)
  Receive Date: 20241114
  Receipt Date: 20241114
  Transmission Date: 20250115
  Serious: Yes (Other)
  Sender: TAKEDA
  Company Number: IT-MYLANLABS-2024M1098437

PATIENT
  Age: 70 Year
  Sex: Male

DRUGS (3)
  1. MESALAMINE [Suspect]
     Active Substance: MESALAMINE
     Indication: Prophylaxis
     Dosage: 800 MILLIGRAM, QD
  2. MESALAMINE [Suspect]
     Active Substance: MESALAMINE
     Dosage: 3 DOSAGE FORM, QD
  3. MESALAMINE [Suspect]
     Active Substance: MESALAMINE
     Dosage: 2 DOSAGE FORM, QD

REACTIONS (3)
  - Diverticulitis [Unknown]
  - Pyrexia [Unknown]
  - Off label use [Unknown]
